FAERS Safety Report 4393735-0 (Version None)
Quarter: 2004Q3

REPORT INFORMATION
  Report Type: 
  Country: None (occurrence: None)
  Receive Date: 20040709
  Receipt Date: 20040625
  Transmission Date: 20050211
  Serious: Yes (Hospitalization, Disabling)
  Sender: FDA-Public Use
  Company Number: FR-GLAXOSMITHKLINE-B0336960A

PATIENT
  Age: 46 Year
  Sex: Male

DRUGS (6)
  1. ZOVIRAX [Suspect]
     Dosage: 1400MG PER DAY
     Route: 042
     Dates: start: 20040527, end: 20040530
  2. SANDIMMUNE [Suspect]
     Route: 042
     Dates: start: 20040513, end: 20040527
  3. PROGRAF [Suspect]
     Dosage: 2UNIT PER DAY
     Route: 048
     Dates: start: 20040528
  4. INEXIUM [Concomitant]
  5. LEVOTHYROXINE SODIUM [Concomitant]
     Route: 048
  6. HEPARIN [Concomitant]

REACTIONS (1)
  - DEAFNESS [None]
